FAERS Safety Report 7564708-1 (Version None)
Quarter: 2011Q2

REPORT INFORMATION
  Report Type: 
  Country: None (occurrence: None)
  Receive Date: 20110622
  Receipt Date: 20101025
  Transmission Date: 20111010
  Serious: Yes (Death, Hospitalization, Other)
  Sender: FDA-Public Use
  Company Number: US-MYLANLABS-2010S1017153

PATIENT
  Age: 25 Year
  Sex: Male

DRUGS (5)
  1. PRISTIQ [Concomitant]
     Route: 048
  2. CLOZAPINE [Suspect]
     Route: 048
     Dates: start: 20080904, end: 20100923
  3. CLOZAPINE [Suspect]
     Indication: SCHIZOAFFECTIVE DISORDER
     Route: 048
     Dates: start: 20080904, end: 20100923
  4. LAMICTAL [Concomitant]
     Route: 048
  5. TRIHEXYPHENIDYL HCL [Concomitant]
     Route: 048

REACTIONS (4)
  - GRANULOCYTOPENIA [None]
  - LEUKOPENIA [None]
  - SEPSIS [None]
  - PNEUMONIA [None]
